FAERS Safety Report 8455179-1 (Version None)
Quarter: 2012Q2

REPORT INFORMATION
  Report Type: 
  Country: None (occurrence: None)
  Receive Date: 20120621
  Receipt Date: 20120614
  Transmission Date: 20120825
  Serious: Yes (Hospitalization)
  Sender: FDA-Public Use
  Company Number: NL-BAXTER-2012BAX008665

PATIENT
  Age: 65 Year
  Sex: Male

DRUGS (1)
  1. TISSEEL VH [Suspect]
     Indication: WOUND CLOSURE
     Route: 061
     Dates: start: 20101021

REACTIONS (1)
  - ABSCESS [None]
